FAERS Safety Report 9136815 (Version 2)
Quarter: 2013Q2

REPORT INFORMATION
  Report Type: Spontaneous
  Country: US (occurrence: US)
  Receive Date: 20130304
  Receipt Date: 20130502
  Transmission Date: 20140414
  Serious: Yes (Hospitalization, Other)
  Sender: FDA-Public Use
  Company Number: US-ELI_LILLY_AND_COMPANY-US201301009599

PATIENT
  Sex: Female
  Weight: 42.18 kg

DRUGS (6)
  1. FORTEO [Suspect]
     Indication: OSTEOPOROSIS
     Dosage: 20 UG, QD
     Route: 065
     Dates: start: 201207
  2. FORTEO [Suspect]
     Dosage: 20 UG, QD
     Dates: start: 201207
  3. FORTEO [Suspect]
     Dosage: 20 UG, QD
     Dates: start: 2001
  4. CALCIUM [Concomitant]
     Dosage: UNK
  5. VITAMIN D [Concomitant]
     Dosage: UNK
  6. ZANTAC [Concomitant]
     Dosage: UNK

REACTIONS (8)
  - Back injury [Recovered/Resolved]
  - Accident at work [Recovered/Resolved]
  - Pain in extremity [Unknown]
  - Pain in extremity [Unknown]
  - Heart rate abnormal [Unknown]
  - Arthropathy [Unknown]
  - Drug dose omission [Unknown]
  - Bone disorder [Unknown]
